FAERS Safety Report 23759584 (Version 1)
Quarter: 2024Q2

REPORT INFORMATION
  Report Type: Report from Study
  Country: US (occurrence: US)
  Receive Date: 20240418
  Receipt Date: 20240418
  Transmission Date: 20240716
  Serious: Yes (Hospitalization)
  Sender: FDA-Public Use
  Company Number: US-ABBVIE-5723155

PATIENT
  Age: 76 Year
  Sex: Female

DRUGS (1)
  1. RINVOQ [Suspect]
     Active Substance: UPADACITINIB
     Indication: Crohn^s disease
     Route: 048
     Dates: start: 20231123

REACTIONS (5)
  - Transfusion [Unknown]
  - Asthenia [Unknown]
  - Abdominal pain [Unknown]
  - Fatigue [Unknown]
  - Feeding disorder [Unknown]

NARRATIVE: CASE EVENT DATE: 20240401
